FAERS Safety Report 4475884-1 (Version None)
Quarter: 2004Q4

REPORT INFORMATION
  Report Type: 
  Country: None (occurrence: None)
  Receive Date: 20041012
  Receipt Date: 20040928
  Transmission Date: 20050328
  Serious: Yes (Other)
  Sender: FDA-Public Use
  Company Number: 2003147867US

PATIENT
  Age: 40 Year
  Sex: Male
  Weight: 133.3 kg

DRUGS (1)
  1. CELEBREX [Suspect]
     Indication: ARTHRITIS
     Dosage: 200 MG, BID,
     Dates: start: 19990909

REACTIONS (2)
  - DEEP VEIN THROMBOSIS [None]
  - DYSPNOEA [None]
